FAERS Safety Report 15571700 (Version 2)
Quarter: 2018Q4

REPORT INFORMATION
  Report Type: Spontaneous
  Country: PL (occurrence: PL)
  Receive Date: 20181031
  Receipt Date: 20181128
  Transmission Date: 20190205
  Serious: Yes (Other)
  Sender: FDA-Public Use
  Company Number: PL-B.I. PHARMACEUTICALS,INC./RIDGEFIELD-2018-BI-053103

PATIENT
  Age: 64 Year
  Sex: Female

DRUGS (2)
  1. LOKREN [Concomitant]
     Active Substance: BETAXOLOL HYDROCHLORIDE
     Indication: HYPERTENSION
     Route: 065
  2. MICARDIS PLUS [Suspect]
     Active Substance: HYDROCHLOROTHIAZIDE\TELMISARTAN
     Indication: HYPERTENSION
     Route: 048
     Dates: start: 1998, end: 201811

REACTIONS (5)
  - Dehydration [Recovered/Resolved]
  - Uterine haemorrhage [Unknown]
  - Endometrial adenocarcinoma [Not Recovered/Not Resolved]
  - Abdominal pain [Unknown]
  - Peripheral swelling [Recovered/Resolved]

NARRATIVE: CASE EVENT DATE: 20181025
